FAERS Safety Report 4781258-6 (Version None)
Quarter: 2005Q3

REPORT INFORMATION
  Report Type: 
  Country: None (occurrence: None)
  Receive Date: 20050928
  Receipt Date: 20050331
  Transmission Date: 20060218
  Serious: Yes (Other)
  Sender: FDA-Public Use
  Company Number: NL-GLAXOSMITHKLINE-B0377052A

PATIENT
  Sex: Male

DRUGS (1)
  1. ABACAVIR SULFATE + LAMIVUDINE + ZIDOVUDINE [Suspect]
     Indication: DRUG USE FOR UNKNOWN INDICATION
     Route: 065
     Dates: start: 20031001

REACTIONS (3)
  - CEREBROVASCULAR ACCIDENT [None]
  - ILLUSION [None]
  - VISUAL ACUITY REDUCED [None]
